FAERS Safety Report 23617567 (Version 1)
Quarter: 2024Q1

REPORT INFORMATION
  Report Type: Spontaneous
  Country: PT (occurrence: PT)
  Receive Date: 20240311
  Receipt Date: 20240311
  Transmission Date: 20240410
  Serious: Yes (Death, Other)
  Sender: FDA-Public Use
  Company Number: PT-GILEAD-2024-0664981

PATIENT
  Age: 41 Year
  Sex: Female

DRUGS (1)
  1. TRODELVY [Suspect]
     Active Substance: SACITUZUMAB GOVITECAN-HZIY
     Indication: Product used for unknown indication
     Dosage: UNK
     Route: 065
     Dates: start: 20230330

REACTIONS (9)
  - Death [Fatal]
  - Breast pain [Unknown]
  - Flushing [Unknown]
  - Urinary tract infection [Unknown]
  - Diarrhoea [Unknown]
  - Vulvovaginal candidiasis [Unknown]
  - Fatigue [Unknown]
  - Diarrhoea [Unknown]
  - Diarrhoea [Unknown]

NARRATIVE: CASE EVENT DATE: 20230405
